FAERS Safety Report 24542722 (Version 1)
Quarter: 2024Q4

REPORT INFORMATION
  Report Type: Spontaneous
  Country: US (occurrence: US)
  Receive Date: 20241024
  Receipt Date: 20241024
  Transmission Date: 20250115
  Serious: No
  Sender: GLENMARK
  Company Number: US-GLENMARK PHARMACEUTICALS-2024GMK093664

PATIENT

DRUGS (2)
  1. RYALTRIS [Suspect]
     Active Substance: MOMETASONE FUROATE MONOHYDRATE\OLOPATADINE HYDROCHLORIDE
     Indication: Rhinitis
     Dosage: 2 DOSAGE FORM, BID (INSTILL 2 SPRAYS INTO EACH NOSTRIL TWICE DAILY)
     Route: 045
     Dates: start: 20240117
  2. RYALTRIS [Suspect]
     Active Substance: MOMETASONE FUROATE MONOHYDRATE\OLOPATADINE HYDROCHLORIDE
     Indication: Rhinorrhoea
     Dosage: 1 DOSAGE FORM, BID (HER PHYSICIAN WHO ADVISED HER TO CUT DOSING DOWN TO 1 SPRAY INTO EACH NOSTRIL TW
     Route: 045

REACTIONS (2)
  - Nasal dryness [Unknown]
  - Product use in unapproved indication [Unknown]
